FAERS Safety Report 24679927 (Version 1)
Quarter: 2024Q4

REPORT INFORMATION
  Report Type: Spontaneous
  Country: US (occurrence: US)
  Receive Date: 20241129
  Receipt Date: 20241129
  Transmission Date: 20250114
  Serious: Yes (Hospitalization)
  Sender: DR REDDYS
  Company Number: None

PATIENT
  Age: 62 Year
  Sex: Male

DRUGS (3)
  1. ERYTHROMYCIN [Suspect]
     Active Substance: ERYTHROMYCIN
     Indication: Product used for unknown indication
     Dosage: ERYTHROMYCIN 4 TIMES DAILY (6 HOURS INTERVAL)
  2. DOXYCYCLINE [Suspect]
     Active Substance: DOXYCYCLINE
     Indication: Product used for unknown indication
     Dosage: DOXYCYCLINE 100 MG TWICE DAILY TO COMPLETE A 6-WEEKCOURSE
  3. TACROLIMUS [Suspect]
     Active Substance: TACROLIMUS
     Indication: Product used for unknown indication

REACTIONS (6)
  - Diarrhoea [Unknown]
  - Crystal nephropathy [Recovering/Resolving]
  - Condition aggravated [Recovering/Resolving]
  - Acute kidney injury [Recovering/Resolving]
  - Kidney fibrosis [Recovering/Resolving]
  - Drug interaction [Unknown]
